FAERS Safety Report 10686323 (Version 1)
Quarter: 2014Q4

REPORT INFORMATION
  Report Type: Spontaneous
  Country: US (occurrence: US)
  Receive Date: 20141231
  Receipt Date: 20141231
  Transmission Date: 20150529
  Serious: No
  Sender: FDA-Public Use
  Company Number: US-TEVA-532166USA

PATIENT
  Age: 18 Year
  Sex: Female
  Weight: 104.42 kg

DRUGS (2)
  1. TAKE ACTION [Suspect]
     Active Substance: LEVONORGESTREL
     Indication: POST COITAL CONTRACEPTION
     Dosage: 1.5 MILLIGRAM DAILY;
     Route: 048
     Dates: start: 20141011, end: 20141011
  2. IRON [Concomitant]
     Active Substance: IRON
     Indication: ANAEMIA

REACTIONS (5)
  - Menstruation irregular [Recovered/Resolved]
  - Menstruation delayed [Not Recovered/Not Resolved]
  - Abdominal pain upper [Not Recovered/Not Resolved]
  - Headache [Recovered/Resolved]
  - Pelvic pain [Not Recovered/Not Resolved]

NARRATIVE: CASE EVENT DATE: 201411
